FAERS Safety Report 21191647 (Version 1)
Quarter: 2022Q3

REPORT INFORMATION
  Report Type: Report from Study
  Country: CN (occurrence: CN)
  Receive Date: 20220809
  Receipt Date: 20220809
  Transmission Date: 20221027
  Serious: Yes (Death, Other)
  Sender: FDA-Public Use
  Company Number: CN-BAXTER-2022BAX016839

PATIENT
  Age: 69 Year
  Sex: Male
  Weight: 60 kg

DRUGS (21)
  1. AMINO ACIDS\DEXTROSE\ELECTROLYTES NOS\SOYBEAN OIL [Suspect]
     Active Substance: AMINO ACIDS\DEXTROSE\ELECTROLYTES NOS\SOYBEAN OIL
     Indication: Product used for unknown indication
     Dosage: 1500 ML, INFUSION RATE: 3ML/KG/H
     Route: 065
     Dates: start: 20210624, end: 20210624
  2. AMINO ACIDS\DEXTROSE\ELECTROLYTES NOS\SOYBEAN OIL [Suspect]
     Active Substance: AMINO ACIDS\DEXTROSE\ELECTROLYTES NOS\SOYBEAN OIL
     Dosage: 1500 ML, INFUSION RATE: 3ML/KG/H
     Route: 065
     Dates: start: 20210625, end: 20210626
  3. AMINO ACIDS\DEXTROSE\ELECTROLYTES NOS\SOYBEAN OIL [Suspect]
     Active Substance: AMINO ACIDS\DEXTROSE\ELECTROLYTES NOS\SOYBEAN OIL
     Dosage: 1500 ML, INFUSION RATE: 3ML/KG/H
     Route: 065
     Dates: start: 20210626, end: 20210627
  4. AMINO ACIDS\DEXTROSE\ELECTROLYTES NOS\SOYBEAN OIL [Suspect]
     Active Substance: AMINO ACIDS\DEXTROSE\ELECTROLYTES NOS\SOYBEAN OIL
     Dosage: 1500 ML, INFUSION RATE: 3ML/KG/H
     Route: 065
     Dates: start: 20210627, end: 20210628
  5. AMINO ACIDS\DEXTROSE\ELECTROLYTES NOS\SOYBEAN OIL [Suspect]
     Active Substance: AMINO ACIDS\DEXTROSE\ELECTROLYTES NOS\SOYBEAN OIL
     Dosage: 1500 ML, INFUSION RATE: 3ML/KG/H
     Route: 065
     Dates: start: 20210628, end: 20210629
  6. AMINO ACIDS\DEXTROSE\ELECTROLYTES NOS\SOYBEAN OIL [Suspect]
     Active Substance: AMINO ACIDS\DEXTROSE\ELECTROLYTES NOS\SOYBEAN OIL
     Dosage: 1500 ML, INFUSION RATE: 3ML/KG/H
     Route: 065
     Dates: start: 20210629, end: 20210630
  7. AMINO ACIDS\DEXTROSE\ELECTROLYTES NOS\SOYBEAN OIL [Suspect]
     Active Substance: AMINO ACIDS\DEXTROSE\ELECTROLYTES NOS\SOYBEAN OIL
     Dosage: 1500 ML, INFUSION RATE: 3ML/KG/H
     Route: 065
     Dates: start: 20210630, end: 20210701
  8. VITAMINS NOS [Concomitant]
     Active Substance: VITAMINS
     Indication: Drug therapy
     Dosage: 1
     Route: 065
     Dates: start: 20210624, end: 20210624
  9. VITAMINS NOS [Concomitant]
     Active Substance: VITAMINS
     Dosage: 1A
     Route: 065
     Dates: start: 20210625, end: 20210626
  10. VITAMINS NOS [Concomitant]
     Active Substance: VITAMINS
     Dosage: 1A
     Route: 065
     Dates: start: 20210626, end: 20210627
  11. VITAMINS NOS [Concomitant]
     Active Substance: VITAMINS
     Dosage: 1A
     Route: 065
     Dates: start: 20210627, end: 20210628
  12. VITAMINS NOS [Concomitant]
     Active Substance: VITAMINS
     Dosage: 1A
     Route: 065
     Dates: start: 20210628, end: 20210629
  13. VITAMINS NOS [Concomitant]
     Active Substance: VITAMINS
     Dosage: 1A
     Route: 065
     Dates: start: 20210629, end: 20210630
  14. VITAMINS NOS [Concomitant]
     Active Substance: VITAMINS
     Dosage: 1A
     Route: 065
     Dates: start: 20210630, end: 20210701
  15. UNSPECIFIED INGREDIENT [Concomitant]
     Active Substance: UNSPECIFIED INGREDIENT
     Indication: Drug therapy
     Dosage: 1G
     Route: 065
     Dates: start: 20210624, end: 20210624
  16. UNSPECIFIED INGREDIENT [Concomitant]
     Active Substance: UNSPECIFIED INGREDIENT
     Dosage: 1G
     Route: 065
     Dates: start: 20210625, end: 20210626
  17. UNSPECIFIED INGREDIENT [Concomitant]
     Active Substance: UNSPECIFIED INGREDIENT
     Dosage: 1G
     Route: 065
     Dates: start: 20210626, end: 20210627
  18. UNSPECIFIED INGREDIENT [Concomitant]
     Active Substance: UNSPECIFIED INGREDIENT
     Dosage: 1G
     Route: 065
     Dates: start: 20210627, end: 20210628
  19. UNSPECIFIED INGREDIENT [Concomitant]
     Active Substance: UNSPECIFIED INGREDIENT
     Dosage: 1G
     Route: 065
     Dates: start: 20210628, end: 20210629
  20. UNSPECIFIED INGREDIENT [Concomitant]
     Active Substance: UNSPECIFIED INGREDIENT
     Dosage: 1G
     Route: 065
     Dates: start: 20210629, end: 20210630
  21. UNSPECIFIED INGREDIENT [Concomitant]
     Active Substance: UNSPECIFIED INGREDIENT
     Dosage: 1G
     Route: 065
     Dates: start: 20210630, end: 20210701

REACTIONS (1)
  - Bile duct cancer [Fatal]

NARRATIVE: CASE EVENT DATE: 20210624
